FAERS Safety Report 18468984 (Version 1)
Quarter: 2020Q4

REPORT INFORMATION
  Report Type: Report from Study
  Country: BR (occurrence: BR)
  Receive Date: 20201105
  Receipt Date: 20201105
  Transmission Date: 20210114
  Serious: Yes (Death, Hospitalization, Other)
  Sender: FDA-Public Use
  Company Number: BR-TAKEDA-BR202014565

PATIENT

DRUGS (2)
  1. ELAPRASE [Suspect]
     Active Substance: IDURSULFASE
     Indication: MUCOPOLYSACCHARIDOSIS II
     Dosage: 3 DOSAGE FORM, ACCORDING TO PRESCRIPTION
     Route: 042
  2. ELAPRASE [Suspect]
     Active Substance: IDURSULFASE
     Dosage: UNK
     Route: 065
     Dates: start: 201806

REACTIONS (4)
  - Death [Fatal]
  - Fall [Recovered/Resolved]
  - Inappropriate schedule of product administration [Recovering/Resolving]
  - Choking [Recovered/Resolved]

NARRATIVE: CASE EVENT DATE: 20200415
